FAERS Safety Report 6313747-7 (Version None)
Quarter: 2009Q3

REPORT INFORMATION
  Report Type: 
  Country: None (occurrence: None)
  Receive Date: 20090818
  Receipt Date: 20080620
  Transmission Date: 20100115
  Serious: No
  Sender: FDA-Public Use
  Company Number: US-BRISTOL-MYERS SQUIBB COMPANY-14235915

PATIENT
  Age: 53 Year
  Sex: Male
  Weight: 67 kg

DRUGS (9)
  1. REYATAZ [Suspect]
     Indication: HIV INFECTION
     Dosage: REYATAZ INCREASED TO 400MG QD
     Dates: start: 20041101
  2. NORVIR [Suspect]
     Dates: end: 20080501
  3. RESCRIPTOR [Concomitant]
  4. DIDANOSINE [Concomitant]
  5. ZIAGEN [Concomitant]
  6. PROZAC [Concomitant]
  7. TERAZOSIN HCL [Concomitant]
  8. RANITIDINE [Concomitant]
  9. LIPITOR [Concomitant]

REACTIONS (2)
  - HYPERBILIRUBINAEMIA [None]
  - OCULAR ICTERUS [None]
